FAERS Safety Report 7399814-8 (Version None)
Quarter: 2011Q2

REPORT INFORMATION
  Report Type: 
  Country: None (occurrence: None)
  Receive Date: 20110407
  Receipt Date: 20110328
  Transmission Date: 20111010
  Serious: Yes (Other)
  Sender: FDA-Public Use
  Company Number: US-SANOFI-AVENTIS-2011SA018849

PATIENT
  Age: 60 Year
  Sex: Male

DRUGS (10)
  1. MULTAQ [Suspect]
     Indication: ATRIAL FIBRILLATION
     Route: 048
     Dates: start: 20110201
  2. CELEBREX [Concomitant]
  3. CLARITIN [Concomitant]
  4. MULTI-VITAMINS [Concomitant]
  5. WARFARIN SODIUM [Concomitant]
  6. BIOTIN [Concomitant]
  7. ASPIRIN [Concomitant]
  8. SIMVASTATIN [Concomitant]
  9. FISH OIL [Concomitant]
  10. QUINAPRIL [Concomitant]

REACTIONS (1)
  - BLOOD THYROID STIMULATING HORMONE DECREASED [None]
